FAERS Safety Report 19466414 (Version 1)
Quarter: 2021Q2

REPORT INFORMATION
  Report Type: Spontaneous
  Country: FR (occurrence: FR)
  Receive Date: 20210628
  Receipt Date: 20210628
  Transmission Date: 20210717
  Serious: Yes (Other)
  Sender: FDA-Public Use
  Company Number: FR-AUROBINDO-AUR-APL-2021-026501

PATIENT
  Age: 68 Year
  Sex: Male

DRUGS (2)
  1. OXALIPLATIN. [Suspect]
     Active Substance: OXALIPLATIN
     Indication: PLEURAL MESOTHELIOMA MALIGNANT
     Dosage: 520 MILLIGRAM/SQ. METER (4 CYCLE)
     Route: 065
  2. RALTITREXED [Suspect]
     Active Substance: RALTITREXED
     Indication: PLEURAL MESOTHELIOMA MALIGNANT
     Dosage: 12 MILLIGRAM/SQ. METER (4 CYCLE)
     Route: 065

REACTIONS (1)
  - Haematotoxicity [Unknown]
